FAERS Safety Report 5197147-1 (Version None)
Quarter: 2007Q1

REPORT INFORMATION
  Report Type: 
  Country: None (occurrence: None)
  Receive Date: 20070103
  Receipt Date: 20061221
  Transmission Date: 20070707
  Serious: Yes (Other)
  Sender: FDA-Public Use
  Company Number: J200604465

PATIENT
  Age: 31 Year
  Sex: Male

DRUGS (3)
  1. SAWACILLIN [Suspect]
     Dosage: 1500MG PER DAY
     Route: 048
     Dates: start: 20060819
  2. KLARICID [Suspect]
     Dosage: 400MG PER DAY
     Route: 048
     Dates: start: 20060819, end: 20060821
  3. TAKEPRON [Suspect]
     Dosage: 60MG PER DAY
     Route: 048
     Dates: start: 20060819, end: 20060821

REACTIONS (2)
  - HYPOAESTHESIA [None]
  - STEVENS-JOHNSON SYNDROME [None]
